FAERS Safety Report 6970219-4 (Version None)
Quarter: 2010Q3

REPORT INFORMATION
  Report Type: 
  Country: None (occurrence: None)
  Receive Date: 20100908
  Receipt Date: 20100826
  Transmission Date: 20110219
  Serious: Yes (Hospitalization)
  Sender: FDA-Public Use
  Company Number: GB-BAYER-201017899GPV

PATIENT
  Age: 35 Year
  Sex: Male

DRUGS (5)
  1. ALEMTUZUMAB [Suspect]
     Indication: MULTIPLE SCLEROSIS
     Dosage: MONTH 0
     Route: 042
     Dates: start: 20090810, end: 20090814
  2. ALEMTUZUMAB [Suspect]
     Dosage: MONTH 0
     Route: 042
     Dates: start: 20100818, end: 20100820
  3. METHYLPREDNISOLONE [Concomitant]
     Indication: MULTIPLE SCLEROSIS
     Dates: start: 20090810, end: 20090812
  4. ACETAMINOPHEN [Concomitant]
     Dates: start: 20100102, end: 20100107
  5. AMOXICILLIN [Concomitant]
     Dates: start: 20100209, end: 20100213

REACTIONS (1)
  - RETINAL PIGMENT EPITHELIOPATHY [None]
